FAERS Safety Report 7117202-6 (Version None)
Quarter: 2010Q4

REPORT INFORMATION
  Report Type: 
  Country: None (occurrence: None)
  Receive Date: 20101122
  Receipt Date: 20101111
  Transmission Date: 20110411
  Serious: Yes (Other)
  Sender: FDA-Public Use
  Company Number: PHHY2010US76876

PATIENT
  Sex: Female

DRUGS (11)
  1. EXTAVIA [Suspect]
     Indication: MULTIPLE SCLEROSIS
     Dosage: 0.187 MG, QOD
     Route: 058
     Dates: start: 20101008
  2. LYRICA [Concomitant]
     Dosage: 225 MG, BID
  3. ASPIRIN [Concomitant]
     Dosage: 325 MG, QD
  4. PLAVIX [Concomitant]
     Dosage: 75 MG, QD
  5. CARVEDILOL [Concomitant]
     Dosage: 6.25 MG, BID
  6. DIOVAN [Concomitant]
     Dosage: 325 MG, QD
  7. NEXIUM [Concomitant]
     Dosage: 40 MG, BID
  8. NITROGLYCERIN [Concomitant]
     Dosage: 4 PRN
  9. NORVASC [Concomitant]
     Dosage: 10 MG, QD
  10. OXAPROZIN [Concomitant]
     Dosage: 600 MG, BID
  11. PRAVACHOL [Concomitant]
     Dosage: 40 MG, QD

REACTIONS (1)
  - GENERALISED OEDEMA [None]
